FAERS Safety Report 15459435 (Version 5)
Quarter: 2019Q1

REPORT INFORMATION
  Report Type: Report from Study
  Country: US (occurrence: US)
  Receive Date: 20181003
  Receipt Date: 20190222
  Transmission Date: 20190417
  Serious: Yes (Other)
  Sender: FDA-Public Use
  Company Number: PHEH2018US040913

PATIENT
  Sex: Female

DRUGS (1)
  1. TYKERB [Suspect]
     Active Substance: LAPATINIB DITOSYLATE
     Indication: PRODUCT USED FOR UNKNOWN INDICATION
     Route: 065

REACTIONS (8)
  - Nervousness [Unknown]
  - Nerve compression [Unknown]
  - Stress [Unknown]
  - Breast cancer stage IV [Unknown]
  - Tremor [Unknown]
  - Depression [Unknown]
  - Depressed mood [Unknown]
  - Hypoaesthesia [Unknown]
